FAERS Safety Report 8918865 (Version 1)
Quarter: 2012Q4

REPORT INFORMATION
  Report Type: Spontaneous
  Country: US (occurrence: None)
  Receive Date: 20121115
  Receipt Date: 20121115
  Transmission Date: 20130627
  Serious: Yes (Hospitalization)
  Sender: FDA-Public Use
  Company Number: None

PATIENT
  Age: 59 Year
  Sex: Male
  Weight: 99 kg

DRUGS (1)
  1. GEMCITABINE [Suspect]
     Route: 042
     Dates: start: 20120111, end: 20120119

REACTIONS (6)
  - Nausea [None]
  - Vomiting [None]
  - Neutropenic sepsis [None]
  - Electrocardiogram ST segment elevation [None]
  - Ascites [None]
  - Leukopenia [None]
